FAERS Safety Report 12847609 (Version 3)
Quarter: 2016Q4

REPORT INFORMATION
  Report Type: Spontaneous
  Country: FR (occurrence: FR)
  Receive Date: 20161014
  Receipt Date: 20161102
  Transmission Date: 20170207
  Serious: Yes (Death, Hospitalization, Other)
  Sender: FDA-Public Use
  Company Number: FR-ELI_LILLY_AND_COMPANY-FR201610003079

PATIENT
  Age: 74 Year
  Sex: Female

DRUGS (8)
  1. VENOFER [Suspect]
     Active Substance: IRON SUCROSE
     Indication: ANAEMIA
     Dosage: 100MG /5ML, UNKNOWN
     Route: 042
  2. INNOHEP [Suspect]
     Active Substance: TINZAPARIN SODIUM
     Indication: DEEP VEIN THROMBOSIS
     Dosage: 0.4 ML, UNK
     Route: 058
     Dates: start: 201607, end: 20160801
  3. LEVOTHYROX [Concomitant]
     Active Substance: LEVOTHYROXINE
     Indication: PRODUCT USED FOR UNKNOWN INDICATION
     Dosage: 1 DF, QD
     Route: 048
  4. GEMZAR [Suspect]
     Active Substance: GEMCITABINE HYDROCHLORIDE
     Indication: PANCREATIC CARCINOMA
     Dosage: 1 DF, CYCLICAL
     Route: 042
  5. BISOPROLOL [Concomitant]
     Active Substance: BISOPROLOL
     Indication: PRODUCT USED FOR UNKNOWN INDICATION
     Dosage: 2.5 MG, QD
     Route: 048
  6. METEOXANE                          /01772101/ [Concomitant]
     Indication: PRODUCT USED FOR UNKNOWN INDICATION
     Dosage: UNK
     Route: 048
  7. CORDARONE [Concomitant]
     Active Substance: AMIODARONE HYDROCHLORIDE
     Indication: PRODUCT USED FOR UNKNOWN INDICATION
     Dosage: 1 DF, QD
     Route: 048
  8. PARLODEL [Concomitant]
     Active Substance: BROMOCRIPTINE MESYLATE
     Indication: PRODUCT USED FOR UNKNOWN INDICATION
     Dosage: 0.5 DF, QD
     Route: 048

REACTIONS (10)
  - Tachyarrhythmia [Unknown]
  - Spontaneous haematoma [Recovered/Resolved]
  - Ascites [Unknown]
  - Pleural effusion [Unknown]
  - Bladder dilatation [Unknown]
  - Anaemia [Recovering/Resolving]
  - Venous occlusion [Unknown]
  - Abdominal pain [Unknown]
  - Cardiopulmonary failure [Fatal]
  - Neutrophil count increased [Unknown]

NARRATIVE: CASE EVENT DATE: 2016
